FAERS Safety Report 14631065 (Version 2)
Quarter: 2018Q1

REPORT INFORMATION
  Report Type: Report from Study
  Country: US (occurrence: US)
  Receive Date: 20180313
  Receipt Date: 20180323
  Transmission Date: 20180509
  Serious: Yes (Hospitalization)
  Sender: FDA-Public Use
  Company Number: US-EISAI MEDICAL RESEARCH-EC-2018-036868

PATIENT
  Age: 74 Year
  Sex: Male

DRUGS (3)
  1. AFINITOR [Concomitant]
     Active Substance: EVEROLIMUS
  2. LENVIMA [Suspect]
     Active Substance: LENVATINIB
     Indication: RENAL CANCER
     Route: 048
     Dates: start: 20180214, end: 20180214
  3. LENVIMA [Suspect]
     Active Substance: LENVATINIB
     Route: 048
     Dates: start: 2018, end: 201803

REACTIONS (12)
  - Abdominal distension [Unknown]
  - Anxiety [Unknown]
  - Confusional state [Unknown]
  - Constipation [Unknown]
  - Peripheral swelling [Unknown]
  - Blood pressure increased [Unknown]
  - Joint swelling [Unknown]
  - Fluid retention [Unknown]
  - Cardiac failure congestive [Unknown]
  - Electrocardiogram abnormal [Unknown]
  - Pulmonary oedema [Unknown]
  - Asthenia [Unknown]

NARRATIVE: CASE EVENT DATE: 20180215
